FAERS Safety Report 6645937-8 (Version None)
Quarter: 2010Q1

REPORT INFORMATION
  Report Type: 
  Country: None (occurrence: None)
  Receive Date: 20100323
  Receipt Date: 20100318
  Transmission Date: 20100710
  Serious: Yes (Other)
  Sender: FDA-Public Use
  Company Number: PHHY2009BR56887

PATIENT
  Sex: Male

DRUGS (2)
  1. DIOVAN HCT [Suspect]
     Dosage: 320/12.5 MG, UNK
  2. ATENOLOL [Concomitant]
     Dosage: 50 MG/DAY

REACTIONS (1)
  - HYPERTENSION [None]
